FAERS Safety Report 8942792 (Version 3)
Quarter: 2013Q3

REPORT INFORMATION
  Report Type: Report from Study
  Country: JP (occurrence: JP)
  Receive Date: 20121204
  Receipt Date: 20130920
  Transmission Date: 20140515
  Serious: Yes (Other)
  Sender: FDA-Public Use
  Company Number: JP-VERTEX PHARMACEUTICALS INC.-2012-025407

PATIENT
  Age: 60 Year
  Sex: Male

DRUGS (11)
  1. VX-950 (TELAPREVIR) [Suspect]
     Indication: CHRONIC HEPATITIS C
     Dosage: 1500 MG, QD
     Route: 048
     Dates: start: 20120807, end: 20121029
  2. RIBAVIRIN [Suspect]
     Indication: CHRONIC HEPATITIS C
     Dosage: 600 MG, QD
     Route: 048
     Dates: start: 20120807
  3. PEGINTERFERON ALFA-2B [Suspect]
     Indication: CHRONIC HEPATITIS C
     Dosage: 1.6 ?G/KG,QW
     Route: 058
     Dates: start: 20120807, end: 20120813
  4. PEGINTERFERON ALFA-2B [Suspect]
     Dosage: 1.28 ?G/KG, QW
     Route: 058
     Dates: start: 20120814, end: 20120820
  5. PEGINTERFERON ALFA-2B [Suspect]
     Dosage: 1.45 ?G/KG, QW
     Route: 058
     Dates: start: 20120821, end: 20120903
  6. PEGINTERFERON ALFA-2B [Suspect]
     Dosage: 1.28 ?G/KG, QW
     Route: 058
     Dates: start: 20120904, end: 20121029
  7. PEGINTERFERON ALFA-2B [Suspect]
     Dosage: 1 ?G/KG, QW
     Route: 058
     Dates: start: 20121030, end: 20121105
  8. PEGINTERFERON ALFA-2B [Suspect]
     Dosage: 1.2 ?G/KG, QW
     Route: 058
     Dates: start: 20121106
  9. NAUZELIN [Concomitant]
     Dosage: 30 MG, QD
     Route: 048
     Dates: start: 20120807, end: 20121119
  10. LOXONIN [Concomitant]
     Dosage: 60 MG, PRN
     Route: 048
     Dates: start: 20120807, end: 20120822
  11. TALION [Concomitant]
     Dosage: 20 MG, QD
     Route: 048
     Dates: start: 20120807

REACTIONS (1)
  - White blood cell count decreased [Recovered/Resolved]
